FAERS Safety Report 4618551-3 (Version None)
Quarter: 2005Q1

REPORT INFORMATION
  Report Type: 
  Country: None (occurrence: None)
  Receive Date: 20050323
  Receipt Date: 20050310
  Transmission Date: 20050727
  Serious: Yes (Death, Other)
  Sender: FDA-Public Use
  Company Number: 2005039400

PATIENT
  Age: 35 Year
  Sex: Female

DRUGS (2)
  1. ZOLOFT [Suspect]
     Indication: DEPRESSION
     Dosage: ORAL
     Route: 048
     Dates: end: 20041224
  2. TRAMADOL HCL [Suspect]
     Indication: ANALGESIC EFFECT
     Dosage: ORAL
     Route: 048
     Dates: end: 20041224

REACTIONS (2)
  - DRUG INTERACTION [None]
  - DRUG TOXICITY [None]
